FAERS Safety Report 6073909-3 (Version None)
Quarter: 2009Q1

REPORT INFORMATION
  Report Type: 
  Country: None (occurrence: None)
  Receive Date: 20090211
  Receipt Date: 20090206
  Transmission Date: 20090719
  Serious: Yes (Death)
  Sender: FDA-Public Use
  Company Number: US-MERCK-0812USA01809

PATIENT
  Age: 25 Year
  Sex: Male

DRUGS (1)
  1. ISENTRESS [Suspect]
     Indication: HIV INFECTION
     Route: 048
     Dates: end: 20081126

REACTIONS (1)
  - DEATH [None]
